FAERS Safety Report 5698615-6 (Version None)
Quarter: 2008Q2

REPORT INFORMATION
  Report Type: 
  Country: None (occurrence: None)
  Receive Date: 20080408
  Receipt Date: 20061114
  Transmission Date: 20081010
  Serious: No
  Sender: FDA-Public Use
  Company Number: US-BAYER-US-2006-036162

PATIENT
  Age: 59 Year
  Sex: Female

DRUGS (5)
  1. CLIMARA [Suspect]
     Route: 062
     Dates: start: 19960101, end: 20051101
  2. CLIMARA [Suspect]
     Route: 062
     Dates: start: 20051101
  3. PRAVACHOL [Concomitant]
  4. CALCIUM [Concomitant]
  5. GLUCOSAMINE [Concomitant]

REACTIONS (1)
  - BONE DENSITY DECREASED [None]
